FAERS Safety Report 15518203 (Version 5)
Quarter: 2019Q4

REPORT INFORMATION
  Report Type: Spontaneous
  Country: US (occurrence: US)
  Receive Date: 20181017
  Receipt Date: 20191017
  Transmission Date: 20200122
  Serious: Yes (Death, Other)
  Sender: FDA-Public Use
  Company Number: US-PFIZER INC-2018419185

PATIENT
  Age: 73 Year
  Sex: Female

DRUGS (1)
  1. XALKORI [Suspect]
     Active Substance: CRIZOTINIB
     Indication: OVARIAN CANCER
     Dosage: 250 MG, UNK

REACTIONS (10)
  - Second primary malignancy [Unknown]
  - Product use in unapproved indication [Unknown]
  - Off label use [Unknown]
  - Lung neoplasm malignant [Unknown]
  - Anxiety [Unknown]
  - Chest pain [Unknown]
  - Hypothyroidism [Unknown]
  - Dyspnoea [Unknown]
  - Death [Fatal]
  - Pleural effusion [Unknown]
